FAERS Safety Report 4752198-3 (Version None)
Quarter: 2005Q3

REPORT INFORMATION
  Report Type: 
  Country: None (occurrence: None)
  Receive Date: 20050825
  Receipt Date: 20050816
  Transmission Date: 20060218
  Serious: Yes (Hospitalization)
  Sender: FDA-Public Use
  Company Number: 2005CG01380

PATIENT
  Age: 21 Year
  Sex: Female

DRUGS (4)
  1. DIPRIVAN [Suspect]
     Indication: GENERAL ANAESTHESIA
     Route: 042
     Dates: start: 20050531, end: 20050531
  2. PERFALGAN [Suspect]
     Route: 042
     Dates: start: 20050531, end: 20050531
  3. SPASFON [Concomitant]
     Dates: start: 20050531, end: 20050531
  4. ALFENTANIL [Concomitant]
     Dates: start: 20050531, end: 20050531

REACTIONS (3)
  - ALANINE AMINOTRANSFERASE INCREASED [None]
  - ASPARTATE AMINOTRANSFERASE INCREASED [None]
  - HEPATIC ENZYME INCREASED [None]
